FAERS Safety Report 17494405 (Version 1)
Quarter: 2020Q1

REPORT INFORMATION
  Report Type: Spontaneous
  Country: GB (occurrence: GB)
  Receive Date: 20200303
  Receipt Date: 20200303
  Transmission Date: 20200409
  Serious: Yes (Hospitalization, Other)
  Sender: FDA-Public Use
  Company Number: GB-JNJFOC-20200231875

PATIENT
  Age: 32 Year
  Sex: Male
  Weight: 83.81 kg

DRUGS (2)
  1. INVEGA [Suspect]
     Active Substance: PALIPERIDONE
     Indication: SCHIZOPHRENIA
     Dosage: 10MG FOR THREE MONTHS THEN 25MG
     Route: 048
     Dates: start: 20191008, end: 20200128
  2. DOXEPIN [Suspect]
     Active Substance: DOXEPIN
     Indication: SCHIZOPHRENIA
     Dosage: 6MG FOR THREE MONTHS THEN 9MG
     Route: 048
     Dates: start: 20191008, end: 20200123

REACTIONS (4)
  - Cardiac discomfort [Recovered/Resolved with Sequelae]
  - Heart rate irregular [Unknown]
  - Heart rate increased [Unknown]
  - Cardiac flutter [Recovered/Resolved with Sequelae]

NARRATIVE: CASE EVENT DATE: 20191210
